FAERS Safety Report 9417745 (Version 2)
Quarter: 2013Q4

REPORT INFORMATION
  Report Type: Spontaneous
  Country: US (occurrence: US)
  Receive Date: 20130724
  Receipt Date: 20131011
  Transmission Date: 20140711
  Serious: Yes (Death)
  Sender: FDA-Public Use
  Company Number: US-BIOGENIDEC-2013BI066891

PATIENT
  Age: 59 Year
  Sex: Female
  Weight: 68 kg

DRUGS (19)
  1. TECFIDERA [Suspect]
     Indication: MULTIPLE SCLEROSIS
     Route: 048
     Dates: start: 20130515, end: 20130521
  2. TECFIDERA [Suspect]
     Indication: MULTIPLE SCLEROSIS
     Route: 048
     Dates: start: 20130522, end: 20130604
  3. TECFIDERA [Suspect]
     Indication: MULTIPLE SCLEROSIS
     Route: 048
     Dates: start: 20130605, end: 20130612
  4. TECFIDERA [Suspect]
     Indication: MULTIPLE SCLEROSIS
     Route: 048
     Dates: start: 20130612, end: 20130624
  5. AVONEX [Concomitant]
  6. TYSABRI [Concomitant]
  7. AMITRIPTYLINE [Concomitant]
     Route: 048
  8. MELATONIN [Concomitant]
     Route: 048
  9. LOVAZA [Concomitant]
     Route: 048
  10. TRIAMTERENE [Concomitant]
     Route: 048
  11. HCTZ [Concomitant]
     Route: 048
  12. NEXIUM [Concomitant]
  13. BUDESONIDE [Concomitant]
  14. TEMAZEPAM [Concomitant]
  15. BUPROPION XL [Concomitant]
  16. AMPHETAMINE/ DEXTROAMPHETAMINE [Concomitant]
  17. FENTANYL [Concomitant]
     Dosage: DOSE UNIT:75
  18. HYDROCODONE [Concomitant]
  19. ACETAMINOPHEN [Concomitant]

REACTIONS (5)
  - Pneumonia [Fatal]
  - Septic shock [Fatal]
  - Nausea [Not Recovered/Not Resolved]
  - Vomiting [Not Recovered/Not Resolved]
  - Diarrhoea [Not Recovered/Not Resolved]
